FAERS Safety Report 4381985-9 (Version None)
Quarter: 2004Q2

REPORT INFORMATION
  Report Type: 
  Country: None (occurrence: None)
  Receive Date: 20040603
  Receipt Date: 20030602
  Transmission Date: 20050107
  Serious: Yes (Hospitalization)
  Sender: FDA-Public Use
  Company Number: 200315141US

PATIENT
  Sex: Female
  Weight: 113.63 kg

DRUGS (9)
  1. LOVENOX [Suspect]
     Indication: DEEP VEIN THROMBOSIS
     Dosage: 100 MG Q12H
  2. LOVENOX [Suspect]
     Indication: HYPERCOAGULATION
     Dosage: 100 MG Q12H
  3. LOVENOX [Suspect]
     Indication: PULMONARY EMBOLISM
     Dosage: 100 MG Q12H
  4. LOVENOX [Suspect]
     Indication: DEEP VEIN THROMBOSIS
     Dosage: 80 MG Q12H
  5. LOVENOX [Suspect]
     Indication: HYPERCOAGULATION
     Dosage: 80 MG Q12H
  6. LOVENOX [Suspect]
     Indication: PULMONARY EMBOLISM
     Dosage: 80 MG Q12H
  7. WARFARIN SODIUM [Concomitant]
  8. FRAGMIN [Concomitant]
  9. ANTIRETROVIRAL DRUG [Concomitant]

REACTIONS (3)
  - PETECHIAE [None]
  - PULMONARY EMBOLISM [None]
  - THROMBOCYTOPENIA [None]
